FAERS Safety Report 22606618 (Version 1)
Quarter: 2023Q2

REPORT INFORMATION
  Report Type: Spontaneous
  Country: US (occurrence: None)
  Receive Date: 20230614
  Receipt Date: 20230614
  Transmission Date: 20230722
  Serious: Yes (Life-Threatening, Hospitalization, Disabling, Other)
  Sender: FDA-Public Use
  Company Number: None

PATIENT
  Age: 79 Year
  Sex: Female
  Weight: 50.8 kg

DRUGS (1)
  1. AMIODARONE [Suspect]
     Active Substance: AMIODARONE
     Indication: Product used for unknown indication
     Dosage: FREQUENCY : DAILY;?
     Route: 048
     Dates: start: 20221031, end: 20230315

REACTIONS (11)
  - Renal function test abnormal [None]
  - Decreased appetite [None]
  - Vestibular nystagmus [None]
  - Diplopia [None]
  - Asthenia [None]
  - Weight decreased [None]
  - Nausea [None]
  - Amnesia [None]
  - Speech disorder [None]
  - Blood pressure decreased [None]
  - Product use issue [None]

NARRATIVE: CASE EVENT DATE: 20230315
